FAERS Safety Report 9183318 (Version 1)
Quarter: 2013Q1

REPORT INFORMATION
  Report Type: Report from Study
  Country: US (occurrence: US)
  Receive Date: 20130322
  Receipt Date: 20130322
  Transmission Date: 20140127
  Serious: Yes (Other)
  Sender: FDA-Public Use
  Company Number: US-ABBOTT-13P-163-1063486-00

PATIENT
  Age: 36 Year
  Sex: Female

DRUGS (3)
  1. HUMIRA [Suspect]
     Indication: CROHN^S DISEASE
     Dates: end: 201208
  2. HUMIRA [Suspect]
     Dates: start: 201301
  3. PENTASA [Concomitant]
     Indication: PRODUCT USED FOR UNKNOWN INDICATION

REACTIONS (6)
  - Cyst [Recovering/Resolving]
  - Sinusitis [Recovering/Resolving]
  - Vitamin D decreased [Recovering/Resolving]
  - Crohn^s disease [Unknown]
  - Diarrhoea [Unknown]
  - Abdominal pain [Unknown]
